FAERS Safety Report 12642384 (Version 1)
Quarter: 2016Q3

REPORT INFORMATION
  Report Type: Spontaneous
  Country: IT (occurrence: IT)
  Receive Date: 20160810
  Receipt Date: 20160810
  Transmission Date: 20161109
  Serious: Yes (Other)
  Sender: FDA-Public Use
  Company Number: PHHY2016IT108614

PATIENT
  Age: 26 Year
  Sex: Female

DRUGS (1)
  1. AMOXICILLIN. [Suspect]
     Active Substance: AMOXICILLIN
     Indication: HEADACHE
     Route: 065
     Dates: start: 20151222, end: 20151222

REACTIONS (6)
  - Wrong drug administered [Unknown]
  - Nausea [Recovering/Resolving]
  - Presyncope [Recovering/Resolving]
  - Abdominal pain [Recovering/Resolving]
  - Hypersensitivity [Unknown]
  - Pruritus [Recovering/Resolving]

NARRATIVE: CASE EVENT DATE: 20151222
